FAERS Safety Report 23987532 (Version 2)
Quarter: 2024Q3

REPORT INFORMATION
  Report Type: Report from Study
  Country: CN (occurrence: CN)
  Receive Date: 20240618
  Receipt Date: 20240701
  Transmission Date: 20241017
  Serious: Yes (Life-Threatening, Hospitalization, Other)
  Sender: PFIZER
  Company Number: CN-TAKEDA-2022TUS091374

PATIENT
  Age: 27 Year
  Sex: Female
  Weight: 72 kg

DRUGS (11)
  1. ADCETRIS [Suspect]
     Active Substance: BRENTUXIMAB VEDOTIN
     Indication: Hodgkin^s disease
     Dosage: 100 MILLIGRAM, Q3WEEKS
     Route: 041
     Dates: start: 20220506
  2. ADCETRIS [Suspect]
     Active Substance: BRENTUXIMAB VEDOTIN
     Dosage: 100 MILLIGRAM, Q3WEEKS
     Route: 041
     Dates: start: 20220530
  3. CYTARABINE [Suspect]
     Active Substance: CYTARABINE
     Indication: Lymphoma
     Dosage: 0.2 GRAM, BID
     Route: 042
     Dates: start: 20220901, end: 20220904
  4. DEXAMETHASONE SODIUM PHOSPHATE [Suspect]
     Active Substance: DEXAMETHASONE PHOSPHATE\DEXAMETHASONE SODIUM PHOSPHATE
     Indication: Lymphoma
     Dosage: 30 MILLIGRAM, QD
     Route: 042
     Dates: start: 20220507
  5. CARMUSTINE [Suspect]
     Active Substance: CARMUSTINE
     Indication: Lymphoma
     Dosage: 500 MILLIGRAM, QD
     Route: 042
     Dates: start: 20220831, end: 20220831
  6. ETOPOSIDE [Suspect]
     Active Substance: ETOPOSIDE
     Indication: Lymphoma
     Dosage: 0.3 GRAM, QD
     Route: 042
     Dates: start: 20220901, end: 20220904
  7. MELPHALAN HYDROCHLORIDE [Suspect]
     Active Substance: MELPHALAN\MELPHALAN HYDROCHLORIDE
     Indication: Lymphoma
     Dosage: 200 MILLIGRAM, QD
     Route: 042
     Dates: start: 20220905, end: 20220905
  8. CISPLATIN [Suspect]
     Active Substance: CISPLATIN
     Indication: Lymphoma
     Dosage: 120 MILLIGRAM, QD
     Route: 042
     Dates: start: 20220507
  9. VIDARABINE [Suspect]
     Active Substance: VIDARABINE
     Indication: Lymphoma
     Dosage: 2.5 GRAM
     Route: 042
     Dates: start: 20220508
  10. MATRINE [Concomitant]
     Active Substance: MATRINE
     Indication: Prophylaxis
     Dosage: 20 MILLILITER, QD
     Route: 042
     Dates: start: 20220506, end: 20220517
  11. INVESTIGATIONAL PRODUCT [Concomitant]
     Active Substance: INVESTIGATIONAL PRODUCT
     Indication: Prophylaxis
     Dosage: 150 MILLIGRAM, QD
     Route: 042
     Dates: start: 20220506, end: 20220520

REACTIONS (17)
  - Agranulocytosis [Recovered/Resolved]
  - Myelosuppression [Recovered/Resolved]
  - Hypogammaglobulinaemia [Unknown]
  - Lymphocyte count decreased [Unknown]
  - Rash [Unknown]
  - Alanine aminotransferase increased [Recovered/Resolved]
  - Decreased appetite [Recovered/Resolved]
  - Anaemia [Not Recovered/Not Resolved]
  - Platelet count decreased [Unknown]
  - Gastrointestinal inflammation [Recovered/Resolved]
  - Dermatitis allergic [Recovered/Resolved]
  - Upper respiratory tract infection [Recovered/Resolved]
  - Nausea [Recovered/Resolved]
  - Neutrophil count decreased [Recovered/Resolved]
  - Aspartate aminotransferase increased [Not Recovered/Not Resolved]
  - White blood cell count decreased [Unknown]
  - Hypoalbuminaemia [Recovered/Resolved]

NARRATIVE: CASE EVENT DATE: 20220507
